FAERS Safety Report 10426978 (Version 2)
Quarter: 2014Q3

REPORT INFORMATION
  Report Type: Spontaneous
  Country: CH (occurrence: CH)
  Receive Date: 20140903
  Receipt Date: 20140912
  Transmission Date: 20150326
  Serious: Yes (Hospitalization, Other)
  Sender: FDA-Public Use
  Company Number: CH-ASTRAZENECA-2014SE63841

PATIENT
  Age: 7303 Day
  Sex: Female

DRUGS (2)
  1. SEROQUEL [Suspect]
     Active Substance: QUETIAPINE FUMARATE
     Indication: SUICIDAL IDEATION
     Route: 048
     Dates: start: 20140814, end: 20140814
  2. TEMESTA [Suspect]
     Active Substance: LORAZEPAM
     Indication: SUICIDAL IDEATION
     Route: 048
     Dates: start: 20140814, end: 20140814

REACTIONS (2)
  - Exposure during pregnancy [Unknown]
  - Drug abuse [Recovered/Resolved]

NARRATIVE: CASE EVENT DATE: 20140814
